FAERS Safety Report 8941670 (Version 1)
Quarter: 2012Q4

REPORT INFORMATION
  Report Type: 
  Country: FR (occurrence: FR)
  Receive Date: 20121203
  Receipt Date: 20121203
  Transmission Date: 20130627
  Serious: Yes (Death)
  Sender: FDA-Public Use
  Company Number: PHHY2012FR110104

PATIENT
  Age: 4 Year

DRUGS (1)
  1. EXJADE [Suspect]
     Indication: IRON OVERLOAD

REACTIONS (1)
  - Pancreatitis acute [Fatal]
